FAERS Safety Report 17287031 (Version 2)
Quarter: 2020Q1

REPORT INFORMATION
  Report Type: Report from Study
  Country: None (occurrence: CH)
  Receive Date: 20200120
  Receipt Date: 20200206
  Transmission Date: 20200409
  Serious: Yes (Hospitalization)
  Sender: FDA-Public Use
  Company Number: CH-ABBVIE-20K-151-3233393-00

PATIENT
  Age: 84 Year
  Sex: Female

DRUGS (3)
  1. DUODOPA [Suspect]
     Active Substance: CARBIDOPA\LEVODOPA
     Dosage: MD: 10.5 ML, CONTINUOUS RATE DAY: 3.5 ML/H, CONTINUOUS RATE NIGHT: 0 ML/H, ED: 2 ML
     Route: 050
     Dates: start: 20190904, end: 20191223
  2. DUODOPA [Suspect]
     Active Substance: CARBIDOPA\LEVODOPA
     Dosage: MD: 9.5 ML, CR DAY: 4.8 ML/H, CR NIGHT: 0 ML/H, ED: 2 ML, ED BLOCKING TIME: 1 H, LL: 0
     Route: 050
     Dates: start: 20191223
  3. DUODOPA [Suspect]
     Active Substance: CARBIDOPA\LEVODOPA
     Indication: PARKINSON^S DISEASE
     Route: 050
     Dates: start: 20190617, end: 20190904

REACTIONS (5)
  - Vertigo [Not Recovered/Not Resolved]
  - Rib fracture [Recovered/Resolved]
  - Fall [Recovered/Resolved]
  - Freezing phenomenon [Not Recovered/Not Resolved]
  - Akinesia [Recovered/Resolved]

NARRATIVE: CASE EVENT DATE: 20191216
